FAERS Safety Report 21067824 (Version 4)
Quarter: 2022Q3

REPORT INFORMATION
  Report Type: Report from Study
  Country: CN (occurrence: None)
  Receive Date: 20220712
  Receipt Date: 20220801
  Transmission Date: 20221026
  Serious: Yes (Hospitalization)
  Sender: FDA-Public Use
  Company Number: CN-ROCHE-3132308

PATIENT
  Age: 73 Year
  Sex: Female
  Weight: 58 kg

DRUGS (8)
  1. VEMURAFENIB [Suspect]
     Active Substance: VEMURAFENIB
     Indication: Colorectal cancer metastatic
     Dosage: THE LAST TIME THAT THE PATIENT WAS ADMINISTERED VEMURAFENIB TABLETS WAS GIVEN AS 29/JUN/2022
     Route: 048
     Dates: start: 20200531, end: 20220629
  2. VEMURAFENIB [Suspect]
     Active Substance: VEMURAFENIB
     Route: 048
     Dates: start: 20200604, end: 20220629
  3. VEMURAFENIB [Suspect]
     Active Substance: VEMURAFENIB
     Route: 048
     Dates: start: 20200608, end: 20220629
  4. VEMURAFENIB [Suspect]
     Active Substance: VEMURAFENIB
     Route: 048
     Dates: start: 20200617, end: 20220629
  5. VEMURAFENIB [Suspect]
     Active Substance: VEMURAFENIB
     Route: 048
     Dates: start: 20200619, end: 20220629
  6. VEMURAFENIB [Suspect]
     Active Substance: VEMURAFENIB
     Route: 048
     Dates: start: 20220622, end: 20220629
  7. HEPARIN CALCIUM [Concomitant]
     Active Substance: HEPARIN CALCIUM
     Indication: Hypercoagulation
     Dosage: THE SPECIFIC DOSE WAS NOT KNOWN
     Route: 058
     Dates: start: 20200623, end: 20200701
  8. ETORICOXIB [Concomitant]
     Active Substance: ETORICOXIB
     Indication: Abdominal pain lower
     Dosage: 60MG/TIME, ORALLY IF NECESSARY
     Route: 048
     Dates: start: 202205

REACTIONS (2)
  - Anaemia [Not Recovered/Not Resolved]
  - Gastrointestinal haemorrhage [Not Recovered/Not Resolved]

NARRATIVE: CASE EVENT DATE: 20220702
